FAERS Safety Report 4541804-4 (Version None)
Quarter: 2004Q4

REPORT INFORMATION
  Report Type: 
  Country: None (occurrence: None)
  Receive Date: 20041227
  Receipt Date: 20041213
  Transmission Date: 20050328
  Serious: Yes (Hospitalization)
  Sender: FDA-Public Use
  Company Number: 2004110787

PATIENT
  Age: 80 Year
  Sex: Female

DRUGS (1)
  1. CELEBREX [Suspect]
     Indication: ARTHRALGIA
     Dosage: 800 MG (200 MG, 1 IN 1 D)
     Route: 048
     Dates: start: 20030101

REACTIONS (2)
  - GASTRITIS HAEMORRHAGIC [None]
  - OVERDOSE [None]
